FAERS Safety Report 9793021 (Version 1)
Quarter: 2014Q1

REPORT INFORMATION
  Report Type: Spontaneous
  Country: FR (occurrence: FR)
  Receive Date: 20140102
  Receipt Date: 20140102
  Transmission Date: 20141002
  Serious: Yes (Hospitalization)
  Sender: FDA-Public Use
  Company Number: FR-PFIZER INC-2013371199

PATIENT
  Age: 83 Year
  Sex: Female

DRUGS (15)
  1. AMLOR [Suspect]
     Dosage: 5 MG, 1X/DAY
     Route: 048
     Dates: start: 20131127, end: 20131206
  2. ROCEPHINE [Suspect]
     Indication: PNEUMONIA
     Dosage: 1 DF, 1X/DAY
     Route: 058
     Dates: start: 20131127, end: 20131203
  3. LASILIX [Suspect]
     Dosage: 40 MG, 1X/DAY
     Route: 048
     Dates: start: 20131127, end: 20131206
  4. ATHYMIL [Suspect]
     Dosage: 10 MG, 1X/DAY
     Route: 048
     Dates: start: 20131129, end: 20131206
  5. HYDROCORTISONE [Concomitant]
  6. EFFEXOR [Concomitant]
     Dosage: 37.5 MG, DAILY
  7. SELOKEN [Concomitant]
     Dosage: 25 MG, 2X/DAY
  8. ESOMEPRAZOLE [Concomitant]
     Dosage: 40 MG, DAILY
  9. PRAVASTATIN [Concomitant]
     Dosage: 20 MG, DAILY
  10. PLAVIX [Concomitant]
     Dosage: 75 MG, 1X/DAY
  11. TRAMADOL HYDROCHLORIDE [Concomitant]
     Dosage: 50 MG, 2X/DAY
  12. PARACETAMOL [Concomitant]
     Dosage: 1 G, 3X/DAY
  13. CACIT D3 [Concomitant]
     Dosage: 1 G, 1X/DAY
  14. ZYLORIC [Concomitant]
     Dosage: 100 MG, DAILY
  15. NOROXINE [Concomitant]
     Dosage: 400 MG, DAILY

REACTIONS (1)
  - Renal failure acute [Recovering/Resolving]
